FAERS Safety Report 23724319 (Version 1)
Quarter: 2024Q2

REPORT INFORMATION
  Report Type: Spontaneous
  Country: CN (occurrence: CN)
  Receive Date: 20240409
  Receipt Date: 20240409
  Transmission Date: 20240716
  Serious: Yes (Other)
  Sender: FDA-Public Use
  Company Number: CN-009507513-2404CHN001587

PATIENT
  Age: 70 Year
  Sex: Male

DRUGS (3)
  1. PEMBROLIZUMAB [Suspect]
     Active Substance: PEMBROLIZUMAB
     Indication: Lung squamous cell carcinoma stage IV
     Dosage: 200MG Q3W OR 400MG Q6W
     Dates: start: 20191219
  2. CARBOPLATIN [Suspect]
     Active Substance: CARBOPLATIN
     Indication: Lung squamous cell carcinoma stage IV
     Dosage: UNK
     Dates: start: 20191219
  3. PACLITAXEL [Suspect]
     Active Substance: PACLITAXEL
     Indication: Lung squamous cell carcinoma stage IV
     Dosage: UNK
     Dates: start: 20191219

REACTIONS (16)
  - Carcinoembryonic antigen increased [Recovering/Resolving]
  - Bronchostenosis [Unknown]
  - Pneumonitis [Unknown]
  - Lymphadenectomy [Unknown]
  - Lung lobectomy [Unknown]
  - Positron emission tomogram abnormal [Unknown]
  - Atelectasis [Unknown]
  - Lung disorder [Unknown]
  - Emphysema [Unknown]
  - Cystic lung disease [Unknown]
  - Pleural effusion [Unknown]
  - Pleural thickening [Unknown]
  - Aortic stent insertion [Unknown]
  - Arteriosclerosis [Unknown]
  - Aortic aneurysm [Unknown]
  - Product use in unapproved indication [Unknown]

NARRATIVE: CASE EVENT DATE: 20200924
